FAERS Safety Report 9034486 (Version 1)
Quarter: 2013Q1

REPORT INFORMATION
  Report Type: Spontaneous
  Country: US (occurrence: None)
  Receive Date: 20130116
  Receipt Date: 20130116
  Transmission Date: 20140127
  Serious: No
  Sender: FDA-Public Use
  Company Number: None

PATIENT
  Sex: Female

DRUGS (1)
  1. PROLIAPFS 60MG NOVARTIS [Suspect]
     Dates: start: 20110128, end: 20120720

REACTIONS (1)
  - Osteonecrosis of jaw [None]
